FAERS Safety Report 8167374-X (Version None)
Quarter: 2012Q1

REPORT INFORMATION
  Report Type: 
  Country: None (occurrence: None)
  Receive Date: 20120221
  Receipt Date: 20120215
  Transmission Date: 20120608
  Serious: Yes (Hospitalization)
  Sender: FDA-Public Use
  Company Number: SP05547

PATIENT
  Age: 67 Year
  Sex: Female

DRUGS (2)
  1. ANTIHYPERTENSIVE [Concomitant]
  2. VISICOL [Suspect]
     Indication: BOWEL PREPARATION
     Dosage: (50 DOSAGE FORMS), ORAL
     Route: 048
     Dates: start: 20120130, end: 20120131

REACTIONS (1)
  - RENAL FAILURE ACUTE [None]
